FAERS Safety Report 23816119 (Version 2)
Quarter: 2024Q2

REPORT INFORMATION
  Report Type: Spontaneous
  Country: NL (occurrence: NL)
  Receive Date: 20240503
  Receipt Date: 20240517
  Transmission Date: 20240716
  Serious: Yes (Life-Threatening, Hospitalization, Other)
  Sender: FDA-Public Use
  Company Number: None

PATIENT
  Age: 33 Year
  Sex: Female
  Weight: 89 kg

DRUGS (1)
  1. AJOVY [Suspect]
     Active Substance: FREMANEZUMAB-VFRM
     Indication: Migraine prophylaxis
     Dosage: 1X/MONTH 1.5 PIECES: FREMANEZUMAB INJVLST 150MG/ML / AJOVY INJVLST 150MG/ML PEN 1.5ML
     Route: 065
     Dates: start: 20231124, end: 20240402

REACTIONS (5)
  - Renal failure [Not Recovered/Not Resolved]
  - Retinopathy hypertensive [Not Recovered/Not Resolved]
  - Thrombotic microangiopathy [Not Recovered/Not Resolved]
  - Hypertensive emergency [Not Recovered/Not Resolved]
  - Cerebral venous thrombosis [Not Recovered/Not Resolved]
